FAERS Safety Report 4924943-5 (Version None)
Quarter: 2006Q1

REPORT INFORMATION
  Report Type: 
  Country: None (occurrence: None)
  Receive Date: 20060127
  Receipt Date: 20051228
  Transmission Date: 20060701
  Serious: No
  Sender: FDA-Public Use
  Company Number: 2006001154

PATIENT
  Sex: Female

DRUGS (11)
  1. LYRICA [Suspect]
     Indication: DIABETIC NEUROPATHY
     Dosage: 300 MG (75 MG, 2 IN 1 D), ORAL
     Route: 048
     Dates: start: 20051202
  2. GABAPENTIN [Suspect]
     Indication: DIABETIC NEUROPATHY
     Dosage: 150 MG (75 MG, 2 IN 1 D), ORAL
     Route: 048
     Dates: end: 20051202
  3. NITRO PATCH (GLYCERYL TRINITRATE) [Concomitant]
  4. GLIPIZIDE [Concomitant]
  5. PROTONIX [Concomitant]
  6. LASIX [Concomitant]
  7. PLAVIX [Concomitant]
  8. ACTOS [Concomitant]
  9. TOPROL-XL [Concomitant]
  10. CITRACAL (CALCIUM CITRATE) [Concomitant]
  11. SULFASALAZINE [Concomitant]

REACTIONS (3)
  - BODY HEIGHT DECREASED [None]
  - DRUG EFFECT DECREASED [None]
  - MUSCLE SPASMS [None]
